FAERS Safety Report 9308961 (Version 4)
Quarter: 2015Q1

REPORT INFORMATION
  Report Type: Report from Study
  Country: GB (occurrence: GB)
  Receive Date: 20130524
  Receipt Date: 20150320
  Transmission Date: 20150721
  Serious: Yes (Other)
  Sender: FDA-Public Use
  Company Number: GB-009507513-1305GBR012382

PATIENT
  Age: 67 Year
  Sex: Male
  Weight: 90.2 kg

DRUGS (23)
  1. POSACONAZOLE [Suspect]
     Active Substance: POSACONAZOLE
     Indication: ANTIFUNGAL PROPHYLAXIS
     Dosage: 400 MG, BID
     Route: 048
     Dates: start: 20130429, end: 20130529
  2. PREDNISOLONE. [Concomitant]
     Active Substance: PREDNISOLONE
     Indication: LIVER TRANSPLANT
     Dosage: 10 MG, QD
     Route: 048
     Dates: start: 2004
  3. POTASSIUM CHLORIDE. [Concomitant]
     Active Substance: POTASSIUM CHLORIDE
     Indication: ROUTINE HEALTH MAINTENANCE
     Dosage: 10.2 MMOL, PRN
     Route: 042
     Dates: start: 20130512
  4. POSACONAZOLE [Suspect]
     Active Substance: POSACONAZOLE
     Dosage: UNK
     Dates: start: 20130513, end: 20130515
  5. TACROLIMUS. [Concomitant]
     Active Substance: TACROLIMUS
     Indication: LIVER TRANSPLANT
     Dosage: 0.5 MG, BID
     Route: 048
     Dates: start: 2004
  6. MORPHINE SULFATE. [Concomitant]
     Active Substance: MORPHINE SULFATE
     Indication: ANALGESIC THERAPY
     Dosage: 60 MG, FREQUENCY: INFUSION
     Route: 042
     Dates: start: 20130512, end: 20130515
  7. SODIUM LACTATE. [Concomitant]
     Active Substance: SODIUM LACTATE
     Dosage: 500 ML, PRN
     Route: 042
     Dates: start: 20130512, end: 20130514
  8. ACTRAPID [Concomitant]
     Active Substance: INSULIN HUMAN
     Indication: PROPHYLAXIS
     Dosage: 50 IU, FREQUENCY: INFUSION
     Route: 042
     Dates: start: 20130512
  9. NOREPINEPHRINE [Concomitant]
     Active Substance: NOREPINEPHRINE\NOREPINEPHRINE BITARTRATE
     Indication: POSITIVE CARDIAC INOTROPIC EFFECT
     Dosage: 4MG, FREQUENCY: INFUSION
     Route: 042
     Dates: start: 20130512
  10. CYCLOPHOSPHAMIDE. [Concomitant]
     Active Substance: CYCLOPHOSPHAMIDE
     Indication: POSITIVE CARDIAC INOTROPIC EFFECT
     Dosage: 10MG, FREQUENCY: INFUSION
     Route: 042
     Dates: start: 20130512, end: 20130515
  11. RANITIDINE [Concomitant]
     Active Substance: RANITIDINE\RANITIDINE HYDROCHLORIDE
     Indication: PROPHYLAXIS
     Dosage: 50 MG, TID
     Route: 042
     Dates: start: 20130512
  12. ACETYLCYSTEINE. [Concomitant]
     Active Substance: ACETYLCYSTEINE
     Indication: LIVER TRANSPLANT
     Dosage: 600 MG, BID
     Route: 048
  13. PIPERACILLIN AND TAZOBACTAM [Concomitant]
     Active Substance: PIPERACILLIN SODIUM\TAZOBACTAM SODIUM
     Indication: PROPHYLAXIS
     Dosage: 4.5 G, TID
     Route: 042
     Dates: start: 20130512
  14. TEICOPLANIN [Concomitant]
     Active Substance: TEICOPLANIN
     Indication: PROPHYLAXIS
     Dosage: 400 MG, QD
     Route: 042
     Dates: start: 20130512
  15. METHYLPREDNISOLONE. [Concomitant]
     Active Substance: METHYLPREDNISOLONE
     Indication: PROPHYLAXIS
     Dosage: 500 MG, FREQUENCE: OTHER
     Route: 042
     Dates: start: 20130512, end: 20130513
  16. ROCURONIUM BROMIDE. [Concomitant]
     Active Substance: ROCURONIUM BROMIDE
     Indication: SEDATION
     Dosage: 0.1 MG, PRN
     Route: 042
     Dates: start: 20130512, end: 20130512
  17. REMIFENTANIL HYDROCHLORIDE [Concomitant]
     Active Substance: REMIFENTANIL HYDROCHLORIDE
     Indication: ANALGESIC THERAPY
     Dosage: 2 MG, FREQUENCY: INFUSION
     Route: 042
     Dates: start: 20130512, end: 20130515
  18. REMIFENTANIL HYDROCHLORIDE [Concomitant]
     Active Substance: REMIFENTANIL HYDROCHLORIDE
     Indication: SEDATION
  19. MIDAZOLAM [Concomitant]
     Active Substance: MIDAZOLAM\MIDAZOLAM HYDROCHLORIDE
     Indication: SEDATION
     Dosage: 0.5 MG, PRN
     Route: 042
     Dates: start: 20130512, end: 20130512
  20. PROPOFOL. [Concomitant]
     Active Substance: PROPOFOL
     Indication: SEDATION
     Dosage: UNK, PRN
     Route: 042
     Dates: start: 20130512, end: 20130513
  21. NITROGLYCERIN. [Concomitant]
     Active Substance: NITROGLYCERIN
     Dosage: 50MG, FREQUENCY: INFUSION
     Route: 042
     Dates: start: 20130512
  22. FENTANYL. [Concomitant]
     Active Substance: FENTANYL
     Indication: ANALGESIC THERAPY
     Dosage: 250 MICROGRAM, PRN
     Route: 042
     Dates: start: 20130512, end: 20130512
  23. ACETAMINOPHEN. [Concomitant]
     Active Substance: ACETAMINOPHEN
     Indication: ANALGESIC THERAPY
     Dosage: 1000 MG, QID
     Route: 042
     Dates: start: 20130512

REACTIONS (2)
  - Nephropathy toxic [Recovered/Resolved]
  - Liver disorder [Recovered/Resolved]

NARRATIVE: CASE EVENT DATE: 20130513
